FAERS Safety Report 13955549 (Version 2)
Quarter: 2018Q1

REPORT INFORMATION
  Report Type: Spontaneous
  Country: GB (occurrence: GB)
  Receive Date: 20170911
  Receipt Date: 20180331
  Transmission Date: 20180508
  Serious: Yes (Death, Hospitalization)
  Sender: FDA-Public Use
  Company Number: GB-CONCORDIA PHARMACEUTICALS INC.-GSH201708-004895

PATIENT
  Age: 59 Year
  Sex: Male

DRUGS (2)
  1. ANTIRETROVIRAL [Concomitant]
     Indication: HIV INFECTION
  2. PREDNISOLONE. [Suspect]
     Active Substance: PREDNISOLONE
     Indication: GIARDIASIS
     Route: 048
     Dates: start: 20170502

REACTIONS (3)
  - Contraindicated product administered [Unknown]
  - Escherichia bacteraemia [Unknown]
  - Pneumocystis jirovecii pneumonia [Fatal]
